FAERS Safety Report 6773926-1 (Version None)
Quarter: 2010Q2

REPORT INFORMATION
  Report Type: 
  Country: None (occurrence: None)
  Receive Date: 20100616
  Receipt Date: 20100616
  Transmission Date: 20101027
  Serious: Yes (Other)
  Sender: FDA-Public Use
  Company Number: None

PATIENT
  Sex: Female
  Weight: 69.4003 kg

DRUGS (2)
  1. XANAX [Suspect]
     Indication: ANXIETY
     Dosage: 1 MG QOD PO
     Route: 048
     Dates: start: 20100301, end: 20100401
  2. XANAX [Suspect]
     Indication: PANIC REACTION
     Dosage: 1 MG QOD PO
     Route: 048
     Dates: start: 20100301, end: 20100401

REACTIONS (2)
  - DRUG INEFFECTIVE [None]
  - PRODUCT SUBSTITUTION ISSUE [None]
